FAERS Safety Report 8962959 (Version 3)
Quarter: 2013Q1

REPORT INFORMATION
  Report Type: Spontaneous
  Country: DE (occurrence: DE)
  Receive Date: 20121213
  Receipt Date: 20130114
  Transmission Date: 20140127
  Serious: Yes (Death, Other)
  Sender: FDA-Public Use
  Company Number: DE-PFIZER INC-2012312403

PATIENT
  Age: 78 Year
  Sex: Female

DRUGS (3)
  1. SUTENT [Suspect]
     Indication: THYROID CANCER METASTATIC
     Dosage: 25 MG, 2X/DAY
  2. METRONIDAZOLE [Suspect]
     Dosage: 1500 MG, 1X/DAY
     Route: 042
  3. CEFTRIAXONE [Concomitant]

REACTIONS (4)
  - Acute hepatic failure [Fatal]
  - Multi-organ failure [Fatal]
  - Disseminated intravascular coagulation [Unknown]
  - Renal failure acute [Unknown]
